FAERS Safety Report 15851601 (Version 3)
Quarter: 2019Q2

REPORT INFORMATION
  Report Type: Report from Study
  Country: CA (occurrence: CA)
  Receive Date: 20190122
  Receipt Date: 20190628
  Transmission Date: 20190711
  Serious: Yes (Other)
  Sender: FDA-Public Use
  Company Number: CA-ROCHE-2248990

PATIENT
  Age: 39 Year
  Sex: Female

DRUGS (6)
  1. MODAFINIL. [Concomitant]
     Active Substance: MODAFINIL
     Indication: FATIGUE
     Dosage: ONGOING-YES
     Route: 065
     Dates: start: 201806
  2. SINGULAIR [Concomitant]
     Active Substance: MONTELUKAST SODIUM
     Indication: ASTHMA
     Dosage: ONGOING: YES
     Route: 065
  3. PULMICORT TURBUHALER [Concomitant]
     Active Substance: BUDESONIDE
     Indication: ASTHMA
     Dosage: ONGOING-YES
     Route: 065
     Dates: start: 1990
  4. OCREVUS [Suspect]
     Active Substance: OCRELIZUMAB
     Indication: RELAPSING-REMITTING MULTIPLE SCLEROSIS
     Dosage: 300 MG AT DAY 0 AND 14, THEN 600 MG EVERY 6 MONTH ;ONGOING: YES
     Route: 042
     Dates: start: 20180716, end: 20190617
  5. TRINTELLIX [Concomitant]
     Active Substance: VORTIOXETINE HYDROBROMIDE
     Dosage: ONGOING: YES
     Route: 065
  6. BRICANYL [Concomitant]
     Active Substance: TERBUTALINE SULFATE
     Indication: ASTHMA
     Route: 065

REACTIONS (3)
  - Pneumonia [Unknown]
  - Asthma [Unknown]
  - Lower respiratory tract infection [Recovered/Resolved]

NARRATIVE: CASE EVENT DATE: 201812
